FAERS Safety Report 12389157 (Version 1)
Quarter: 2016Q2

REPORT INFORMATION
  Report Type: Spontaneous
  Country: US (occurrence: US)
  Receive Date: 20160520
  Receipt Date: 20160520
  Transmission Date: 20160815
  Serious: Yes (Death, Other)
  Sender: FDA-Public Use
  Company Number: US-PERRIGO-16US016045

PATIENT
  Age: 39 Year
  Sex: Male

DRUGS (1)
  1. LOPERAMIDE HYDROCHLORIDE. [Suspect]
     Active Substance: LOPERAMIDE HYDROCHLORIDE
     Indication: DRUG ABUSE
     Dosage: UNKNOWN, UNKNOWN
     Route: 048

REACTIONS (5)
  - Dyspnoea [Unknown]
  - Circulatory collapse [Unknown]
  - Overdose [Fatal]
  - Cardiac arrest [Fatal]
  - Drug abuse [Unknown]
